FAERS Safety Report 26072023 (Version 1)
Quarter: 2025Q4

REPORT INFORMATION
  Report Type: Spontaneous
  Country: EU (occurrence: EU)
  Receive Date: 20251120
  Receipt Date: 20251120
  Transmission Date: 20260118
  Serious: Yes (Hospitalization)
  Sender: MYLAN
  Company Number: None

PATIENT
  Age: 56 Year
  Sex: Male

DRUGS (8)
  1. FENTANYL [Suspect]
     Active Substance: FENTANYL
     Indication: Migraine
     Dosage: 37 MICROGRAM, QH
  2. FENTANYL [Suspect]
     Active Substance: FENTANYL
     Dosage: 37 MICROGRAM, QH
     Route: 062
  3. FENTANYL [Suspect]
     Active Substance: FENTANYL
     Dosage: 37 MICROGRAM, QH
     Route: 062
  4. FENTANYL [Suspect]
     Active Substance: FENTANYL
     Dosage: 37 MICROGRAM, QH
  5. SKENAN [Suspect]
     Active Substance: MORPHINE SULFATE
     Indication: Migraine
     Dosage: 2 DOSAGE FORM, QD (DELAYED-RELEASE MICROGRANULES IN CAPSULES)
  6. SKENAN [Suspect]
     Active Substance: MORPHINE SULFATE
     Dosage: 2 DOSAGE FORM, QD (DELAYED-RELEASE MICROGRANULES IN CAPSULES)
     Route: 048
  7. SKENAN [Suspect]
     Active Substance: MORPHINE SULFATE
     Dosage: 2 DOSAGE FORM, QD (DELAYED-RELEASE MICROGRANULES IN CAPSULES)
     Route: 048
  8. SKENAN [Suspect]
     Active Substance: MORPHINE SULFATE
     Dosage: 2 DOSAGE FORM, QD (DELAYED-RELEASE MICROGRANULES IN CAPSULES)

REACTIONS (2)
  - Drug use disorder [Recovering/Resolving]
  - Drug withdrawal syndrome [Recovering/Resolving]

NARRATIVE: CASE EVENT DATE: 20251006
